FAERS Safety Report 13632491 (Version 2)
Quarter: 2017Q3

REPORT INFORMATION
  Report Type: Spontaneous
  Country: JP (occurrence: JP)
  Receive Date: 20170608
  Receipt Date: 20170728
  Transmission Date: 20171127
  Serious: Yes (Other)
  Sender: FDA-Public Use
  Company Number: JP-REGENERON PHARMACEUTICALS, INC.-2017-16873

PATIENT

DRUGS (3)
  1. EYLEA [Suspect]
     Active Substance: AFLIBERCEPT
     Dosage: SECOND DOSE, LEFT EYE
     Route: 031
     Dates: start: 20170418
  2. EYLEA [Suspect]
     Active Substance: AFLIBERCEPT
     Indication: RETINAL VEIN OCCLUSION
     Dosage: FIRST DOSE, LEFT EYE
     Route: 031
     Dates: start: 20170307
  3. EYLEA [Suspect]
     Active Substance: AFLIBERCEPT
     Dosage: THIRD DOSE, LAST DOSE PRIOR TO EVENT, LEFT EYE
     Route: 031
     Dates: start: 20170516

REACTIONS (2)
  - Sudden hearing loss [Recovering/Resolving]
  - Dizziness [Unknown]

NARRATIVE: CASE EVENT DATE: 20170407
